FAERS Safety Report 6238628-9 (Version None)
Quarter: 2009Q2

REPORT INFORMATION
  Report Type: 
  Country: None (occurrence: None)
  Receive Date: 20090622
  Receipt Date: 20090610
  Transmission Date: 20091009
  Serious: Yes (Hospitalization)
  Sender: FDA-Public Use
  Company Number: JP-PFIZER INC-2009226264

PATIENT

DRUGS (1)
  1. ZITHROMAX [Suspect]
     Route: 048

REACTIONS (1)
  - HYPOGLYCAEMIA [None]
